FAERS Safety Report 23029832 (Version 1)
Quarter: 2023Q4

REPORT INFORMATION
  Report Type: Spontaneous
  Country: AU (occurrence: AU)
  Receive Date: 20231004
  Receipt Date: 20231004
  Transmission Date: 20240109
  Serious: Yes (Other)
  Sender: FDA-Public Use
  Company Number: AU-BAXTER-2023BAX032593

PATIENT

DRUGS (6)
  1. SODIUM CHLORIDE [Suspect]
     Active Substance: SODIUM CHLORIDE
     Dosage: AT AN UNSPECIFIED DOSE AND FREQUENCY, MANUFACTURING DATE: 26-JUN-2023
     Route: 065
  2. SODIUM CHLORIDE [Suspect]
     Active Substance: SODIUM CHLORIDE
     Dosage: AT AN UNSPECIFIED DOSE AND FREQUENCY, MANUFACTURING DATE: 11-AUG-2023
     Route: 065
  3. SODIUM CHLORIDE [Suspect]
     Active Substance: SODIUM CHLORIDE
     Dosage: AT AN UNSPECIFIED DOSE AND FREQUENCY, MANUFACTURING DATE: 13-AUG-2023
     Route: 065
  4. SODIUM CHLORIDE [Suspect]
     Active Substance: SODIUM CHLORIDE
     Dosage: AT AN UNSPECIFIED DOSE AND FREQUENCY, MANUFACTURING DATE: 15-AUG-2023
     Route: 065
  5. SODIUM CHLORIDE [Suspect]
     Active Substance: SODIUM CHLORIDE
     Dosage: AT AN UNSPECIFIED DOSE AND FREQUENCY, SODIUM CHLORIDE 0.9% VIAFLEX
     Route: 065
  6. SODIUM CHLORIDE [Suspect]
     Active Substance: SODIUM CHLORIDE
     Dosage: AT AN UNSPECIFIED DOSE AND FREQUENCY, SODIUM CHLORIDE 0.9% VIAFLEX
     Route: 065

REACTIONS (2)
  - Suspected transmission of an infectious agent via product [Unknown]
  - Product contamination microbial [Unknown]
